FAERS Safety Report 9248714 (Version 3)
Quarter: 2013Q2

REPORT INFORMATION
  Report Type: Spontaneous
  Country: IT (occurrence: IT)
  Receive Date: 20130423
  Receipt Date: 20130611
  Transmission Date: 20140414
  Serious: Yes (Other)
  Sender: FDA-Public Use
  Company Number: IT-ROCHE-1216621

PATIENT
  Age: 70 Year
  Sex: Male
  Weight: 77 kg

DRUGS (4)
  1. COPEGUS [Suspect]
     Indication: HEPATITIS C
     Route: 048
     Dates: start: 20130322, end: 20130423
  2. INCIVO [Suspect]
     Indication: HEPATITIS C
     Route: 048
     Dates: start: 20130322, end: 20130412
  3. MICARDIS [Concomitant]
     Indication: HYPERTENSION
     Route: 048
  4. PEGASYS [Concomitant]
     Indication: HEPATITIS C
     Route: 058

REACTIONS (8)
  - Insomnia [Unknown]
  - Polyuria [Unknown]
  - Rash generalised [Unknown]
  - Decreased appetite [Unknown]
  - Pruritus [Unknown]
  - Anaemia [Unknown]
  - Epistaxis [Unknown]
  - Vomiting [Unknown]
